FAERS Safety Report 5663742-6 (Version None)
Quarter: 2008Q1

REPORT INFORMATION
  Report Type: 
  Country: None (occurrence: None)
  Receive Date: 20080311
  Receipt Date: 20080226
  Transmission Date: 20080703
  Serious: No
  Sender: FDA-Public Use
  Company Number: 1-15826569

PATIENT
  Age: 88 Year
  Sex: Female
  Weight: 46.7205 kg

DRUGS (12)
  1. FENTANYL [Suspect]
     Indication: SPINAL COLUMN STENOSIS
     Dosage: 50MCG/HR EVERY 72H, TRANSDERMAL
     Route: 062
     Dates: end: 20080227
  2. FOSAMAX [Concomitant]
  3. CALCIUM [Concomitant]
  4. CYMBALTA [Concomitant]
  5. METOPROLOL TARTRATE [Concomitant]
  6. ISOSORBIDE MONONITRATE [Concomitant]
  7. GLIPIZIDE [Concomitant]
  8. LOVASTATIN [Concomitant]
  9. TYLENOL (CAPLET) [Concomitant]
  10. ASPIRIN [Concomitant]
  11. TYLENOL W/ CODEINE NO. 3 [Concomitant]
  12. ENULOSE [Concomitant]

REACTIONS (11)
  - ANOREXIA [None]
  - BLOOD GLUCOSE INCREASED [None]
  - CRYING [None]
  - DYSPNOEA [None]
  - FEELING ABNORMAL [None]
  - HALLUCINATION [None]
  - HEADACHE [None]
  - HYPERSOMNIA [None]
  - PAIN [None]
  - PHARYNGOLARYNGEAL PAIN [None]
  - URINARY TRACT INFECTION [None]
